FAERS Safety Report 5179086-5 (Version None)
Quarter: 2006Q4

REPORT INFORMATION
  Report Type: 
  Country: None (occurrence: None)
  Receive Date: 20061219
  Receipt Date: 20061115
  Transmission Date: 20070319
  Serious: Yes (Other)
  Sender: FDA-Public Use
  Company Number: US-AMGEN-US201132

PATIENT
  Sex: Male

DRUGS (4)
  1. ENBREL [Suspect]
     Indication: RHEUMATOID ARTHRITIS
     Route: 058
     Dates: start: 19990401
  2. PREDNISONE TAB [Concomitant]
     Dates: start: 19960101
  3. HYDROXYCHLOROQUINE SULFATE [Concomitant]
     Dates: start: 19960101
  4. METHOTREXATE [Concomitant]
     Dates: start: 19960101

REACTIONS (1)
  - MALIGNANT MELANOMA [None]
